FAERS Safety Report 15374821 (Version 1)
Quarter: 2018Q3

REPORT INFORMATION
  Report Type: Spontaneous
  Country: US (occurrence: US)
  Receive Date: 20180912
  Receipt Date: 20180912
  Transmission Date: 20181010
  Serious: Yes (Other)
  Sender: FDA-Public Use
  Company Number: US-TEVA-2018-US-952408

PATIENT
  Age: 79 Year
  Sex: Female

DRUGS (1)
  1. CLONIDINE. [Suspect]
     Active Substance: CLONIDINE
     Route: 065

REACTIONS (2)
  - Lip swelling [Unknown]
  - Swollen tongue [Unknown]
